FAERS Safety Report 3990472 (Version 3)
Quarter: 2019Q1

REPORT INFORMATION
  Report Type: Spontaneous
  Country: JP (occurrence: JP)
  Receive Date: 20030827
  Receipt Date: 20190227
  Transmission Date: 20190418
  Serious: Yes (Other)
  Sender: FDA-Public Use
  Company Number: PHBS2003JP05402

PATIENT
  Age: 81 Year
  Sex: Female
  Weight: 40 kg

DRUGS (8)
  1. GLIVEC [Suspect]
     Active Substance: IMATINIB MESYLATE
     Indication: CHRONIC MYELOID LEUKAEMIA
     Dosage: 200 MG, BID
     Route: 048
     Dates: start: 20030509, end: 20030520
  2. GLIVEC [Suspect]
     Active Substance: IMATINIB MESYLATE
     Dosage: 200 MG, QD
     Route: 048
     Dates: start: 20030704
  3. ZANTAC [Concomitant]
     Active Substance: RANITIDINE HYDROCHLORIDE
     Indication: GASTRITIS
     Dosage: 150 MG, QD
     Route: 048
     Dates: start: 20030522, end: 20030715
  4. HYDREA [Concomitant]
     Active Substance: HYDROXYUREA
     Indication: CHRONIC MYELOID LEUKAEMIA
     Dosage: 500 MG, QD
     Route: 048
     Dates: start: 20030610, end: 20030704
  5. ZYLORIC ^FAES^ [Concomitant]
     Active Substance: ALLOPURINOL
     Indication: HYPERURICAEMIA
     Dosage: 200 MG, QD
     Route: 048
     Dates: start: 20030508, end: 20030715
  6. NEUROTROPIN [Concomitant]
     Active Substance: NEUROTROPIN
     Indication: ANALGESIC THERAPY
     Dosage: UNK
     Route: 048
     Dates: start: 20030512, end: 20030715
  7. CRAVIT [Concomitant]
     Active Substance: LEVOFLOXACIN
     Indication: UPPER RESPIRATORY TRACT INFLAMMATION
     Dosage: 200 MG, QD
     Route: 048
     Dates: start: 20030523, end: 20030529
  8. ZITROMAX [Concomitant]
     Active Substance: AZITHROMYCIN
     Indication: UPPER RESPIRATORY TRACT INFLAMMATION
     Dosage: 500 MG, QD
     Route: 048
     Dates: start: 20030521, end: 20030523

REACTIONS (3)
  - Eosinophilia [Recovering/Resolving]
  - Hypersensitivity [Recovering/Resolving]
  - Rash pruritic [Recovering/Resolving]

NARRATIVE: CASE EVENT DATE: 20030520
